FAERS Safety Report 13993334 (Version 1)
Quarter: 2017Q3

REPORT INFORMATION
  Report Type: Spontaneous
  Country: US (occurrence: US)
  Receive Date: 20170920
  Receipt Date: 20170920
  Transmission Date: 20171128
  Serious: No
  Sender: FDA-Public Use
  Company Number: US-TEVA-717368ACC

PATIENT
  Sex: Female
  Weight: 56.75 kg

DRUGS (9)
  1. LEUCOVORIN CALCIUM TABLETS, USP [Suspect]
     Active Substance: LEUCOVORIN CALCIUM
     Indication: NAUSEA
     Dates: start: 20160819
  2. METHOTREXATE. [Concomitant]
     Active Substance: METHOTREXATE
     Route: 048
  3. LEUCOVORIN CALCIUM TABLETS, USP [Suspect]
     Active Substance: LEUCOVORIN CALCIUM
     Indication: VOMITING
  4. LEUCOVORIN CALCIUM TABLETS, USP [Suspect]
     Active Substance: LEUCOVORIN CALCIUM
     Indication: ALOPECIA
  5. LEUCOVORIN CALCIUM TABLETS, USP [Suspect]
     Active Substance: LEUCOVORIN CALCIUM
     Indication: PROPHYLAXIS
  6. PLAQUENIL [Concomitant]
     Active Substance: HYDROXYCHLOROQUINE SULFATE
     Dosage: 400 MILLIGRAM DAILY;
  7. METHOTREXATE. [Concomitant]
     Active Substance: METHOTREXATE
     Dosage: 0.8CC
  8. METHOTREXATE. [Concomitant]
     Active Substance: METHOTREXATE
     Dosage: 0.7CC
  9. BIOTIN [Concomitant]
     Active Substance: BIOTIN
     Dosage: 10000 UNITS PER DAY

REACTIONS (4)
  - Therapy change [None]
  - Aspartate aminotransferase increased [None]
  - Alanine aminotransferase increased [None]
  - Drug ineffective [Unknown]
